FAERS Safety Report 6673020-4 (Version None)
Quarter: 2010Q2

REPORT INFORMATION
  Report Type: 
  Country: None (occurrence: None)
  Receive Date: 20100408
  Receipt Date: 20100330
  Transmission Date: 20101027
  Serious: Yes (Other)
  Sender: FDA-Public Use
  Company Number: B0645842A

PATIENT
  Age: 45 Year
  Sex: Female

DRUGS (8)
  1. ARIXTRA [Suspect]
     Indication: DRUG USE FOR UNKNOWN INDICATION
     Dosage: 7.5MG PER DAY
     Route: 065
  2. ERLOTINIB [Concomitant]
  3. GEMCITABINE HCL [Concomitant]
  4. OXYCODONE HCL AND ACETAMINOPHEN [Concomitant]
  5. LEVOTHYROXINE SODIUM [Concomitant]
  6. LIDOCAINE [Concomitant]
  7. LEVOFLOXACIN [Concomitant]
     Indication: LUNG INFILTRATION
  8. LEPIRUDIN [Concomitant]

REACTIONS (1)
  - HEPARIN-INDUCED THROMBOCYTOPENIA [None]
